FAERS Safety Report 4928916-8 (Version None)
Quarter: 2006Q1

REPORT INFORMATION
  Report Type: 
  Country: None (occurrence: None)
  Receive Date: 20060228
  Receipt Date: 20060228
  Transmission Date: 20060701
  Serious: Yes (Hospitalization)
  Sender: FDA-Public Use
  Company Number: None

PATIENT
  Sex: Female

DRUGS (6)
  1. CISPLATIN [Suspect]
     Indication: GASTRIC CANCER
     Dosage: 25 MG /M2 DAY 1, 8 Q21D IV
     Route: 042
     Dates: start: 20051109, end: 20060118
  2. IRINOTECAN HCL [Suspect]
     Indication: GASTRIC CANCER
     Dosage: 75 MG IV D1 AND D8 Q3WKS
     Route: 042
     Dates: start: 20051109, end: 20060118
  3. AMBIEN [Concomitant]
  4. MYLANTA [Concomitant]
  5. PREVACID [Concomitant]
  6. PROCRIT [Concomitant]

REACTIONS (3)
  - DEHYDRATION [None]
  - DYSPHAGIA [None]
  - SCAN ABDOMEN ABNORMAL [None]
